FAERS Safety Report 18121214 (Version 2)
Quarter: 2021Q1

REPORT INFORMATION
  Report Type: Report from Study
  Country: US (occurrence: US)
  Receive Date: 20200806
  Receipt Date: 20210212
  Transmission Date: 20210419
  Serious: Yes (Other)
  Sender: FDA-Public Use
  Company Number: US-BAUSCH-BL-2019-054718

PATIENT
  Age: 64 Year
  Sex: Female

DRUGS (3)
  1. APRISO [Suspect]
     Active Substance: MESALAMINE
     Indication: PRODUCT USED FOR UNKNOWN INDICATION
     Route: 065
  2. UCERIS [Suspect]
     Active Substance: BUDESONIDE
     Indication: PRODUCT USED FOR UNKNOWN INDICATION
     Route: 065
  3. UCERIS [Suspect]
     Active Substance: BUDESONIDE
     Indication: COLITIS ULCERATIVE
     Route: 061
     Dates: start: 201908, end: 202007

REACTIONS (5)
  - Anal haemorrhage [Unknown]
  - Incorrect route of product administration [Unknown]
  - Therapy interrupted [Unknown]
  - Product availability issue [Unknown]
  - Ill-defined disorder [Not Recovered/Not Resolved]
